FAERS Safety Report 18361823 (Version 7)
Quarter: 2021Q2

REPORT INFORMATION
  Report Type: Report from Study
  Country: NL (occurrence: NL)
  Receive Date: 20201008
  Receipt Date: 20210506
  Transmission Date: 20210717
  Serious: Yes (Other)
  Sender: FDA-Public Use
  Company Number: NL-INCYTE CORPORATION-2019IN000130

PATIENT

DRUGS (32)
  1. PARACETAMOL [Concomitant]
     Active Substance: ACETAMINOPHEN
     Dosage: 1000 OT
     Route: 065
     Dates: start: 20201001, end: 20201001
  2. BISOPROLOL [Concomitant]
     Active Substance: BISOPROLOL
     Indication: HYPERTENSION
     Dosage: 10 OT
     Route: 065
     Dates: start: 20200325
  3. PREGABALINE [Concomitant]
     Active Substance: PREGABALIN
     Indication: PAIN
     Dosage: 75 OT
     Route: 065
     Dates: start: 20200401, end: 20200404
  4. MORFINE [Concomitant]
     Active Substance: MORPHINE
     Indication: PAIN
     Dosage: 50 OT
     Route: 065
     Dates: start: 20200404, end: 20200410
  5. OBINUTUZUMAB. [Concomitant]
     Active Substance: OBINUTUZUMAB
     Indication: CHRONIC LYMPHOCYTIC LEUKAEMIA
     Dosage: 100 OT
     Route: 065
     Dates: start: 20200917, end: 20200918
  6. ATACAND [Concomitant]
     Active Substance: CANDESARTAN CILEXETIL
     Indication: HYPERTENSION
     Dosage: UNK
     Route: 065
     Dates: start: 2006, end: 20200404
  7. ATORVASTATINE [ATORVASTATIN] [Concomitant]
     Active Substance: ATORVASTATIN
     Indication: HYPERCHOLESTEROLAEMIA
     Dosage: 10 UNK (LAST DOSE WAS ON 18 SEP 2018)
     Route: 065
     Dates: start: 20031106, end: 20180918
  8. OBINUTUZUMAB. [Concomitant]
     Active Substance: OBINUTUZUMAB
     Dosage: 100 OT
     Route: 065
     Dates: start: 20200924, end: 20200924
  9. MACROGOL [Concomitant]
     Active Substance: POLYETHYLENE GLYCOLS
     Indication: CONSTIPATION
     Dosage: 1 OT
     Route: 065
     Dates: start: 20200404
  10. CLEMASTINE [Concomitant]
     Active Substance: CLEMASTINE
     Dosage: 2 OT
     Route: 065
     Dates: start: 20201001, end: 20201001
  11. CHLORAMBUCIL [Concomitant]
     Active Substance: CHLORAMBUCIL
     Indication: CHRONIC LYMPHOCYTIC LEUKAEMIA
     Dosage: 34 OT
     Route: 065
     Dates: start: 20200917
  12. JAKAVI [Suspect]
     Active Substance: RUXOLITINIB
     Indication: POLYCYTHAEMIA VERA
     Dosage: 20 OT
     Route: 048
     Dates: start: 20180922, end: 20200403
  13. MORFINE [Concomitant]
     Active Substance: MORPHINE
     Dosage: 10 OT
     Route: 065
     Dates: start: 20200410, end: 20200514
  14. ACETYLSALICYLIC ACID [Concomitant]
     Active Substance: ASPIRIN
     Indication: THROMBOSIS PROPHYLAXIS
     Dosage: 80 OT
     Route: 065
     Dates: start: 20200325
  15. ALLOPURINOL. [Concomitant]
     Active Substance: ALLOPURINOL
     Indication: CHRONIC LYMPHOCYTIC LEUKAEMIA
     Dosage: 300 OT
     Route: 065
     Dates: start: 20200916, end: 20200930
  16. CLEMASTINE [Concomitant]
     Active Substance: CLEMASTINE
     Dosage: 2 OT
     Route: 065
     Dates: start: 20200924, end: 20200924
  17. CANDESARTAN. [Concomitant]
     Active Substance: CANDESARTAN
     Indication: HYPERTENSION
     Dosage: 16 OT
     Route: 065
     Dates: start: 20180515, end: 20200408
  18. PARACETAMOL [Concomitant]
     Active Substance: ACETAMINOPHEN
     Indication: CHRONIC LYMPHOCYTIC LEUKAEMIA
     Dosage: 1000 OT
     Route: 065
     Dates: start: 20200924, end: 20200924
  19. TRAMADOL. [Concomitant]
     Active Substance: TRAMADOL
     Indication: PAIN
     Dosage: 37.5 OT
     Route: 065
     Dates: start: 20200331, end: 20200404
  20. PREDNISOLONE. [Concomitant]
     Active Substance: PREDNISOLONE
     Indication: CHRONIC LYMPHOCYTIC LEUKAEMIA
  21. DEPO?MEDROL [Concomitant]
     Active Substance: METHYLPREDNISOLONE ACETATE
     Indication: EPIDURAL INJECTION
     Dosage: 120 OT
     Route: 065
     Dates: start: 20200529, end: 20200529
  22. BUPIVACAINE. [Concomitant]
     Active Substance: BUPIVACAINE
     Indication: EPIDURAL INJECTION
     Dosage: 7.5 OT
     Route: 065
     Dates: start: 20200529, end: 20200529
  23. PREDNISOLONE. [Concomitant]
     Active Substance: PREDNISOLONE
     Indication: CHEMOTHERAPY SIDE EFFECT PROPHYLAXIS
     Dosage: 100 OT
     Route: 065
     Dates: start: 20200917, end: 20200918
  24. FENTANYL. [Concomitant]
     Active Substance: FENTANYL
     Indication: EPIDURAL INJECTION
     Dosage: 50 OT
     Route: 065
     Dates: start: 20200529, end: 20200529
  25. CLEMASTINE [Concomitant]
     Active Substance: CLEMASTINE
     Indication: CHRONIC LYMPHOCYTIC LEUKAEMIA
     Dosage: 2 OT
     Route: 065
     Dates: start: 20200917, end: 20200918
  26. OBINUTUZUMAB. [Concomitant]
     Active Substance: OBINUTUZUMAB
     Dosage: 100 OT
     Route: 065
     Dates: start: 20201001, end: 20201001
  27. JAKAVI [Suspect]
     Active Substance: RUXOLITINIB
     Dosage: 20 OT
     Route: 048
     Dates: start: 20200405
  28. PANTOPRAZOL [PANTOPRAZOLE SODIUM SESQUIHYDRATE] [Concomitant]
     Active Substance: PANTOPRAZOLE SODIUM
     Indication: PROPHYLAXIS
     Dosage: 40 OT
     Route: 065
     Dates: start: 20031218
  29. CARBASALAATCALCIUM [Concomitant]
     Active Substance: CARBASPIRIN CALCIUM
     Indication: ANGIOPATHY
     Dosage: 100 UNK
     Route: 065
     Dates: start: 20031105
  30. PARACETAMOL [Concomitant]
     Active Substance: ACETAMINOPHEN
     Indication: PAIN
     Dosage: 325 OT
     Route: 065
     Dates: start: 20200331
  31. PARACETAMOL [Concomitant]
     Active Substance: ACETAMINOPHEN
     Indication: CHEMOTHERAPY SIDE EFFECT PROPHYLAXIS
     Dosage: 1000 OT
     Route: 065
     Dates: start: 20200917, end: 20200918
  32. HYDROCHLOROTHIAZIDE. [Concomitant]
     Active Substance: HYDROCHLOROTHIAZIDE
     Indication: HYPERTENSION
     Dosage: 16.5 OT
     Route: 065
     Dates: start: 20180515, end: 20200408

REACTIONS (8)
  - Cataract [Recovered/Resolved]
  - Fatigue [Not Recovered/Not Resolved]
  - Varicella zoster virus infection [Recovered/Resolved with Sequelae]
  - Lymph gland infection [Recovered/Resolved]
  - Subcutaneous haematoma [Not Recovered/Not Resolved]
  - Acute kidney injury [Recovered/Resolved with Sequelae]
  - Chronic kidney disease [Recovered/Resolved with Sequelae]
  - Nausea [Recovered/Resolved]

NARRATIVE: CASE EVENT DATE: 20181220
